FAERS Safety Report 7406963-4 (Version None)
Quarter: 2011Q2

REPORT INFORMATION
  Report Type: 
  Country: None (occurrence: None)
  Receive Date: 20110411
  Receipt Date: 20110406
  Transmission Date: 20111010
  Serious: No
  Sender: FDA-Public Use
  Company Number: US-PFIZER INC-2011017942

PATIENT
  Sex: Female
  Weight: 63 kg

DRUGS (6)
  1. XANAX [Concomitant]
     Indication: ANXIETY
     Dosage: 0.25 MG, PRN
  2. CHANTIX [Suspect]
     Dosage: 0.5 MG, 1X/DAY
     Route: 048
     Dates: start: 20110101, end: 20110101
  3. EFFEXOR [Concomitant]
     Indication: ANXIETY
     Dosage: UNK
  4. CHANTIX [Suspect]
     Indication: SMOKING CESSATION THERAPY
     Dosage: 0.5 MG, 1X/DAY
     Route: 048
     Dates: start: 20090601, end: 20090701
  5. CHANTIX [Suspect]
     Dosage: 1 MG, 1X/DAY
     Dates: start: 20110101, end: 20110115
  6. CHANTIX [Suspect]
     Dosage: UNK
     Route: 048

REACTIONS (4)
  - STOMATITIS [None]
  - SKIN LESION [None]
  - MALAISE [None]
  - RASH [None]
